FAERS Safety Report 8159529-5 (Version None)
Quarter: 2012Q1

REPORT INFORMATION
  Report Type: 
  Country: None (occurrence: None)
  Receive Date: 20120223
  Receipt Date: 20120214
  Transmission Date: 20120608
  Serious: Yes (Other)
  Sender: FDA-Public Use
  Company Number: BR-ROCHE-1015201

PATIENT
  Sex: Female

DRUGS (2)
  1. XOLAIR [Suspect]
     Indication: ASTHMA
     Dates: start: 20061006
  2. XOLAIR [Suspect]
     Dates: start: 20111010

REACTIONS (10)
  - PAIN IN EXTREMITY [None]
  - MALAISE [None]
  - EAR PAIN [None]
  - ASTHMA [None]
  - ASTHENIA [None]
  - FATIGUE [None]
  - WHEEZING [None]
  - DYSPNOEA [None]
  - FEELING ABNORMAL [None]
  - DIZZINESS [None]
